FAERS Safety Report 22130794 (Version 1)
Quarter: 2023Q1

REPORT INFORMATION
  Report Type: Spontaneous
  Country: SE (occurrence: SE)
  Receive Date: 20230323
  Receipt Date: 20230323
  Transmission Date: 20230417
  Serious: Yes (Hospitalization)
  Sender: FDA-Public Use
  Company Number: None

PATIENT
  Age: 37 Year
  Sex: Female

DRUGS (5)
  1. PROMETHAZINE HYDROCHLORIDE\THIOUREA [Suspect]
     Active Substance: PROMETHAZINE HYDROCHLORIDE\THIOUREA
     Indication: Product used for unknown indication
     Dosage: APPROXIMATELY DOUBLE THE DOSE, TOTAL
     Route: 065
     Dates: start: 20230221, end: 20230221
  2. ACETAMINOPHEN [Suspect]
     Active Substance: ACETAMINOPHEN
     Indication: Product used for unknown indication
     Dosage: 15 GRAM, TOTAL
     Route: 065
     Dates: start: 20230221, end: 20230221
  3. VENLAFAXINE [Suspect]
     Active Substance: VENLAFAXINE HYDROCHLORIDE
     Indication: Product used for unknown indication
     Dosage: TOTAL (APPROXIMATELY DOUBLE THE DOSE)
     Route: 065
     Dates: start: 20230221, end: 20230221
  4. LAMOTRIGINE [Suspect]
     Active Substance: LAMOTRIGINE
     Indication: Product used for unknown indication
     Dosage: APPROXIMATELY DOUBLE THE DOSE, TOTAL
     Route: 065
     Dates: start: 20230221, end: 20230221
  5. MIRTAZAPINE [Suspect]
     Active Substance: MIRTAZAPINE
     Indication: Product used for unknown indication
     Dosage: APPROXIMATELY DOUBLE THE DOSE, TOTAL
     Route: 065
     Dates: start: 20230221, end: 20230221

REACTIONS (3)
  - Liver disorder [Unknown]
  - Suicidal ideation [Unknown]
  - Intentional overdose [Unknown]

NARRATIVE: CASE EVENT DATE: 20230221
